FAERS Safety Report 5451833-4 (Version None)
Quarter: 2007Q3

REPORT INFORMATION
  Report Type: 
  Country: None (occurrence: None)
  Receive Date: 20070912
  Receipt Date: 20070828
  Transmission Date: 20080115
  Serious: Yes (Death)
  Sender: FDA-Public Use
  Company Number: 100#08#2007-03371

PATIENT
  Age: 6 Year
  Sex: Female

DRUGS (4)
  1. CARBOPLATIN [Suspect]
     Indication: RETINOBLASTOMA BILATERAL
     Dosage: 1 500 MG/M2; 6 CYCLES; 4 CYCLES
  2. VINCRISTINE [Suspect]
     Indication: RETINOBLASTOMA BILATERAL
     Dosage: 9 MG/M2; 6 CYLES
  3. ETOPOSIDE [Suspect]
     Indication: RETINOBLASTOMA BILATERAL
     Dosage: 1 425 MG/M2; 5 CYLES
  4. CYCLOPHOSPHAMIDE [Suspect]
     Indication: RETINOBLASTOMA BILATERAL
     Dosage: 2 400 MG/M2; 2 CYCLES

REACTIONS (4)
  - ACUTE MYELOID LEUKAEMIA [None]
  - ACUTE RESPIRATORY DISTRESS SYNDROME [None]
  - NEUTROPENIA [None]
  - SEPSIS [None]
